FAERS Safety Report 11986703 (Version 1)
Quarter: 2016Q1

REPORT INFORMATION
  Report Type: Spontaneous
  Country: US (occurrence: None)
  Receive Date: 20160201
  Receipt Date: 20160201
  Transmission Date: 20160526
  Serious: Yes (Life-Threatening, Hospitalization, Disabling, Other)
  Sender: FDA-Public Use
  Company Number: None

PATIENT
  Age: 51 Year
  Sex: Male
  Weight: 60.33 kg

DRUGS (1)
  1. ENTYVIO [Suspect]
     Active Substance: VEDOLIZUMAB
     Indication: CROHN^S DISEASE
     Route: 042
     Dates: start: 20160101, end: 20160101

REACTIONS (10)
  - Infection [None]
  - Malaise [None]
  - Abdominal pain [None]
  - Diarrhoea [None]
  - Pyrexia [None]
  - Headache [None]
  - Weight decreased [None]
  - Early satiety [None]
  - Nausea [None]
  - Pulmonary embolism [None]

NARRATIVE: CASE EVENT DATE: 20160102
